FAERS Safety Report 15438414 (Version 1)
Quarter: 2018Q4

REPORT INFORMATION
  Report Type: Spontaneous
  Country: US (occurrence: US)
  Receive Date: 20180928
  Receipt Date: 20180928
  Transmission Date: 20190204
  Serious: No
  Sender: FDA-Public Use
  Company Number: US-BION-006655

PATIENT
  Age: 65 Year
  Sex: Female
  Weight: 61.23 kg

DRUGS (2)
  1. EQUATE STOMACH RELIEF C2 PEPTO BISMOL [Concomitant]
     Indication: DIARRHOEA
  2. LOPERAMIDE SOFTGEL BION [Suspect]
     Active Substance: LOPERAMIDE
     Indication: DIARRHOEA
     Dosage: DOSE: 2 SOFTGELS ONCE
     Route: 048
     Dates: start: 20170820

REACTIONS (2)
  - Nausea [Recovered/Resolved]
  - Abdominal discomfort [Recovered/Resolved]

NARRATIVE: CASE EVENT DATE: 20170820
